FAERS Safety Report 8111895-2 (Version None)
Quarter: 2012Q1

REPORT INFORMATION
  Report Type: 
  Country: None (occurrence: None)
  Receive Date: 20120203
  Receipt Date: 20110106
  Transmission Date: 20120608
  Serious: No
  Sender: FDA-Public Use
  Company Number: US-GLAXOSMITHKLINE-A0904970A

PATIENT

DRUGS (1)
  1. ARIXTRA [Suspect]
     Indication: PROPHYLAXIS

REACTIONS (1)
  - POST PROCEDURAL COMPLICATION [None]
